FAERS Safety Report 16379176 (Version 1)
Quarter: 2019Q2

REPORT INFORMATION
  Report Type: Spontaneous
  Country: FR (occurrence: FR)
  Receive Date: 20190531
  Receipt Date: 20190531
  Transmission Date: 20190711
  Serious: Yes (Death, Hospitalization)
  Sender: FDA-Public Use
  Company Number: FR-MYLANLABS-2019M1050372

PATIENT
  Age: 61 Year
  Sex: Male

DRUGS (3)
  1. CICLOSPORIN [Suspect]
     Active Substance: CYCLOSPORINE
     Indication: RENAL TRANSPLANT
     Dosage: 225 MG/D
     Route: 065
     Dates: start: 1989
  2. AZATHIOPRINE. [Suspect]
     Active Substance: AZATHIOPRINE
     Indication: PRODUCT USED FOR UNKNOWN INDICATION
     Dosage: UNK
     Route: 065
     Dates: start: 1989
  3. PREDNISOLONE. [Suspect]
     Active Substance: PREDNISOLONE
     Indication: PRODUCT USED FOR UNKNOWN INDICATION
     Dosage: 20 MG/D
     Route: 065
     Dates: start: 1989

REACTIONS (8)
  - Angiosarcoma [Fatal]
  - Metastases to lung [Fatal]
  - Metastases to skin [Fatal]
  - Haemangioma [Unknown]
  - Necrosis [Fatal]
  - Lung neoplasm malignant [Unknown]
  - Endothelin increased [Fatal]
  - Arm amputation [Fatal]

NARRATIVE: CASE EVENT DATE: 1994
